FAERS Safety Report 9593016 (Version 2)
Quarter: 2013Q4

REPORT INFORMATION
  Report Type: Spontaneous
  Country: FR (occurrence: FR)
  Receive Date: 20131004
  Receipt Date: 20131017
  Transmission Date: 20140711
  Serious: Yes (Hospitalization)
  Sender: FDA-Public Use
  Company Number: FR-UCBSA-099237

PATIENT
  Age: 78 Year
  Sex: Female

DRUGS (9)
  1. KEPPRA [Suspect]
     Indication: EPILEPSY
     Route: 048
     Dates: start: 20121014
  2. DETENSIEL [Concomitant]
  3. ASPEGIC [Concomitant]
  4. LEVOTHYROX [Concomitant]
  5. SERESTA [Concomitant]
  6. STILNOX [Concomitant]
  7. TRANSIPEG [Concomitant]
  8. PARACETAMOL [Concomitant]
  9. EBIXA [Concomitant]

REACTIONS (4)
  - Apathy [Recovered/Resolved]
  - Asthenia [Recovered/Resolved]
  - Mental disorder [Recovered/Resolved]
  - Hypernatraemia [Unknown]
